FAERS Safety Report 4322434-6 (Version None)
Quarter: 2004Q1

REPORT INFORMATION
  Report Type: 
  Country: None (occurrence: None)
  Receive Date: 20040319
  Receipt Date: 20040303
  Transmission Date: 20041129
  Serious: Yes (Hospitalization)
  Sender: FDA-Public Use
  Company Number: A01200401012

PATIENT
  Age: 86 Year
  Sex: Male

DRUGS (6)
  1. CLOPIDOGREL BISULFATE [Suspect]
     Indication: CARDIAC DISORDER
     Dosage: 75 MG QD
     Route: 048
     Dates: start: 20010401, end: 20030326
  2. GLYBURIDE [Suspect]
     Dosage: 5 MG QD
     Route: 048
     Dates: end: 20030326
  3. RAMIPRIL [Concomitant]
  4. CARVEDILOL [Concomitant]
  5. TERAZPSIN (TERAZOSIN) [Concomitant]
  6. RABEPRAZOL (RABEPRAZOLE) [Concomitant]

REACTIONS (7)
  - ABDOMINAL PAIN UPPER [None]
  - ANAEMIA [None]
  - ASTHENIA [None]
  - DRUG INTERACTION [None]
  - FAECAL OCCULT BLOOD POSITIVE [None]
  - GASTRITIS HAEMORRHAGIC [None]
  - INTESTINAL ADENOCARCINOMA [None]
